FAERS Safety Report 26047671 (Version 1)
Quarter: 2025Q4

REPORT INFORMATION
  Report Type: Spontaneous
  Country: GB (occurrence: GB)
  Receive Date: 20251114
  Receipt Date: 20251114
  Transmission Date: 20260118
  Serious: Yes (Disabling)
  Sender: MYLAN
  Company Number: GB-MHRA-TPP38524645C31613417YC1762432997190

PATIENT
  Age: 44 Year
  Sex: Male
  Weight: 103 kg

DRUGS (44)
  1. FAMOTIDINE [Suspect]
     Active Substance: FAMOTIDINE
     Indication: Gastrooesophageal reflux disease
     Dosage: 40 MILLIGRAM, BID
     Dates: start: 20251104
  2. FAMOTIDINE [Suspect]
     Active Substance: FAMOTIDINE
     Dosage: 40 MILLIGRAM, BID
     Route: 048
     Dates: start: 20251104
  3. FAMOTIDINE [Suspect]
     Active Substance: FAMOTIDINE
     Dosage: 40 MILLIGRAM, BID
     Route: 048
     Dates: start: 20251104
  4. FAMOTIDINE [Suspect]
     Active Substance: FAMOTIDINE
     Dosage: 40 MILLIGRAM, BID
     Dates: start: 20251104
  5. BECLOMETHASONE\FORMOTEROL [Concomitant]
     Active Substance: BECLOMETHASONE\FORMOTEROL
     Indication: Ill-defined disorder
     Dosage: 1 DOSAGE FORM, BID (MAINTENANCE, ONE PUFF TWICE A DAY. FOR IMMEDIAT...)
     Dates: start: 20250722
  6. BECLOMETHASONE\FORMOTEROL [Concomitant]
     Active Substance: BECLOMETHASONE\FORMOTEROL
     Dosage: 1 DOSAGE FORM, BID (MAINTENANCE, ONE PUFF TWICE A DAY. FOR IMMEDIAT...)
     Route: 065
     Dates: start: 20250722
  7. BECLOMETHASONE\FORMOTEROL [Concomitant]
     Active Substance: BECLOMETHASONE\FORMOTEROL
     Dosage: 1 DOSAGE FORM, BID (MAINTENANCE, ONE PUFF TWICE A DAY. FOR IMMEDIAT...)
     Route: 065
     Dates: start: 20250722
  8. BECLOMETHASONE\FORMOTEROL [Concomitant]
     Active Substance: BECLOMETHASONE\FORMOTEROL
     Dosage: 1 DOSAGE FORM, BID (MAINTENANCE, ONE PUFF TWICE A DAY. FOR IMMEDIAT...)
     Dates: start: 20250722
  9. Alginate [Concomitant]
     Indication: Ill-defined disorder
     Dosage: UNK, Q6H (10ML-20ML 4 TIMES/DAY)
     Dates: start: 20250722
  10. Alginate [Concomitant]
     Dosage: UNK, Q6H (10ML-20ML 4 TIMES/DAY)
     Route: 065
     Dates: start: 20250722
  11. Alginate [Concomitant]
     Dosage: UNK, Q6H (10ML-20ML 4 TIMES/DAY)
     Route: 065
     Dates: start: 20250722
  12. Alginate [Concomitant]
     Dosage: UNK, Q6H (10ML-20ML 4 TIMES/DAY)
     Dates: start: 20250722
  13. CETIRIZINE [Concomitant]
     Active Substance: CETIRIZINE HYDROCHLORIDE
     Indication: Ill-defined disorder
     Dosage: UNK, QD (TAKE ONE TO THREE DAILY)
     Dates: start: 20250722
  14. CETIRIZINE [Concomitant]
     Active Substance: CETIRIZINE HYDROCHLORIDE
     Dosage: UNK, QD (TAKE ONE TO THREE DAILY)
     Route: 065
     Dates: start: 20250722
  15. CETIRIZINE [Concomitant]
     Active Substance: CETIRIZINE HYDROCHLORIDE
     Dosage: UNK, QD (TAKE ONE TO THREE DAILY)
     Route: 065
     Dates: start: 20250722
  16. CETIRIZINE [Concomitant]
     Active Substance: CETIRIZINE HYDROCHLORIDE
     Dosage: UNK, QD (TAKE ONE TO THREE DAILY)
     Dates: start: 20250722
  17. DIAZEPAM [Concomitant]
     Active Substance: DIAZEPAM
     Indication: Ill-defined disorder
     Dosage: 1 DOSAGE FORM, PRN (TAKE ONE AS NEEDED (14 IN 2 MONTHS))
  18. DIAZEPAM [Concomitant]
     Active Substance: DIAZEPAM
     Dosage: 1 DOSAGE FORM, PRN (TAKE ONE AS NEEDED (14 IN 2 MONTHS))
     Route: 065
  19. DIAZEPAM [Concomitant]
     Active Substance: DIAZEPAM
     Dosage: 1 DOSAGE FORM, PRN (TAKE ONE AS NEEDED (14 IN 2 MONTHS))
     Route: 065
  20. DIAZEPAM [Concomitant]
     Active Substance: DIAZEPAM
     Dosage: 1 DOSAGE FORM, PRN (TAKE ONE AS NEEDED (14 IN 2 MONTHS))
  21. LOSARTAN [Concomitant]
     Active Substance: LOSARTAN
     Indication: Ill-defined disorder
     Dosage: 1 DOSAGE FORM, QD (TAKE ONE DAILY)
     Dates: start: 20250722
  22. LOSARTAN [Concomitant]
     Active Substance: LOSARTAN
     Dosage: 1 DOSAGE FORM, QD (TAKE ONE DAILY)
     Route: 065
     Dates: start: 20250722
  23. LOSARTAN [Concomitant]
     Active Substance: LOSARTAN
     Dosage: 1 DOSAGE FORM, QD (TAKE ONE DAILY)
     Route: 065
     Dates: start: 20250722
  24. LOSARTAN [Concomitant]
     Active Substance: LOSARTAN
     Dosage: 1 DOSAGE FORM, QD (TAKE ONE DAILY)
     Dates: start: 20250722
  25. MIRTAZAPINE [Concomitant]
     Active Substance: MIRTAZAPINE
     Indication: Anxiety
     Dosage: 1 DOSAGE FORM, PM (ONE TABLET AT NIGHT FOR ANXIETY / DEPRESSION)
     Dates: start: 20250722, end: 20251104
  26. MIRTAZAPINE [Concomitant]
     Active Substance: MIRTAZAPINE
     Indication: Depression
     Dosage: 1 DOSAGE FORM, PM (ONE TABLET AT NIGHT FOR ANXIETY / DEPRESSION)
     Route: 065
     Dates: start: 20250722, end: 20251104
  27. MIRTAZAPINE [Concomitant]
     Active Substance: MIRTAZAPINE
     Indication: Ill-defined disorder
     Dosage: 1 DOSAGE FORM, PM (ONE TABLET AT NIGHT FOR ANXIETY / DEPRESSION)
     Route: 065
     Dates: start: 20250722, end: 20251104
  28. MIRTAZAPINE [Concomitant]
     Active Substance: MIRTAZAPINE
     Dosage: 1 DOSAGE FORM, PM (ONE TABLET AT NIGHT FOR ANXIETY / DEPRESSION)
     Dates: start: 20250722, end: 20251104
  29. MOMETASONE [Concomitant]
     Active Substance: MOMETASONE
     Indication: Ill-defined disorder
     Dosage: UNK, QD (ONE TO TWO SPRAYS INTO EACH NOSTRIL ONCE A DAY)
     Dates: start: 20250722
  30. MOMETASONE [Concomitant]
     Active Substance: MOMETASONE
     Dosage: UNK, QD (ONE TO TWO SPRAYS INTO EACH NOSTRIL ONCE A DAY)
     Route: 045
     Dates: start: 20250722
  31. MOMETASONE [Concomitant]
     Active Substance: MOMETASONE
     Dosage: UNK, QD (ONE TO TWO SPRAYS INTO EACH NOSTRIL ONCE A DAY)
     Route: 045
     Dates: start: 20250722
  32. MOMETASONE [Concomitant]
     Active Substance: MOMETASONE
     Dosage: UNK, QD (ONE TO TWO SPRAYS INTO EACH NOSTRIL ONCE A DAY)
     Dates: start: 20250722
  33. SERETIDE [Concomitant]
     Active Substance: FLUTICASONE PROPIONATE\SALMETEROL XINAFOATE
     Indication: Ill-defined disorder
     Dosage: 1 DOSAGE FORM, BID (INHALE 1 DOSE TWICE DAILY)
     Dates: start: 20250722, end: 20250911
  34. SERETIDE [Concomitant]
     Active Substance: FLUTICASONE PROPIONATE\SALMETEROL XINAFOATE
     Dosage: 1 DOSAGE FORM, BID (INHALE 1 DOSE TWICE DAILY)
     Route: 055
     Dates: start: 20250722, end: 20250911
  35. SERETIDE [Concomitant]
     Active Substance: FLUTICASONE PROPIONATE\SALMETEROL XINAFOATE
     Dosage: 1 DOSAGE FORM, BID (INHALE 1 DOSE TWICE DAILY)
     Route: 055
     Dates: start: 20250722, end: 20250911
  36. SERETIDE [Concomitant]
     Active Substance: FLUTICASONE PROPIONATE\SALMETEROL XINAFOATE
     Dosage: 1 DOSAGE FORM, BID (INHALE 1 DOSE TWICE DAILY)
     Dates: start: 20250722, end: 20250911
  37. SUMATRIPTAN [Concomitant]
     Active Substance: SUMATRIPTAN
     Indication: Migraine
     Dosage: 1 DOSAGE FORM, PRN (TAKE ONE AT FIRST SIGN OF A MIGRAINE)
     Dates: start: 20250722, end: 20251104
  38. SUMATRIPTAN [Concomitant]
     Active Substance: SUMATRIPTAN
     Indication: Ill-defined disorder
     Dosage: 1 DOSAGE FORM, PRN (TAKE ONE AT FIRST SIGN OF A MIGRAINE)
     Route: 065
     Dates: start: 20250722, end: 20251104
  39. SUMATRIPTAN [Concomitant]
     Active Substance: SUMATRIPTAN
     Dosage: 1 DOSAGE FORM, PRN (TAKE ONE AT FIRST SIGN OF A MIGRAINE)
     Route: 065
     Dates: start: 20250722, end: 20251104
  40. SUMATRIPTAN [Concomitant]
     Active Substance: SUMATRIPTAN
     Dosage: 1 DOSAGE FORM, PRN (TAKE ONE AT FIRST SIGN OF A MIGRAINE)
     Dates: start: 20250722, end: 20251104
  41. VENTOLIN [Concomitant]
     Active Substance: ALBUTEROL SULFATE
     Indication: Ill-defined disorder
     Dosage: 2 DOSAGE FORM, PRN (INHALE 2 DOSES AS NEEDED)
  42. VENTOLIN [Concomitant]
     Active Substance: ALBUTEROL SULFATE
     Dosage: 2 DOSAGE FORM, PRN (INHALE 2 DOSES AS NEEDED)
     Route: 055
  43. VENTOLIN [Concomitant]
     Active Substance: ALBUTEROL SULFATE
     Dosage: 2 DOSAGE FORM, PRN (INHALE 2 DOSES AS NEEDED)
     Route: 055
  44. VENTOLIN [Concomitant]
     Active Substance: ALBUTEROL SULFATE
     Dosage: 2 DOSAGE FORM, PRN (INHALE 2 DOSES AS NEEDED)

REACTIONS (3)
  - Cough [Recovered/Resolved]
  - Panic attack [Recovered/Resolved]
  - Anxiety [Unknown]

NARRATIVE: CASE EVENT DATE: 20251106
